FAERS Safety Report 16721848 (Version 1)
Quarter: 2019Q3

REPORT INFORMATION
  Report Type: Spontaneous
  Country: DE (occurrence: DE)
  Receive Date: 20190820
  Receipt Date: 20190820
  Transmission Date: 20191005
  Serious: Yes (Hospitalization)
  Sender: FDA-Public Use
  Company Number: DE-TEVA-2019-DE-1093132

PATIENT
  Age: 80 Year
  Sex: Female

DRUGS (15)
  1. METAMIZOL [Concomitant]
     Active Substance: METAMIZOLE SODIUM
     Dosage: NK MG, DEMAND, DROPS
     Route: 065
  2. PHENPROCOUMON [Concomitant]
     Active Substance: PHENPROCOUMON
     Dosage: 3 MG, NACH INR
     Route: 065
  3. AMLODIPINE [Suspect]
     Active Substance: AMLODIPINE BESYLATE
     Dosage: 5 MG, 0-0-1-0
     Route: 065
  4. DEKRISTOL 20000I.E. [Concomitant]
     Dosage: 20000 IE, 1X/WEEK
     Route: 065
  5. PANTOPRAZOL [Concomitant]
     Active Substance: PANTOPRAZOLE SODIUM
     Dosage: 20 MG, 0-0-1-0
     Route: 065
  6. RAMIPRIL. [Suspect]
     Active Substance: RAMIPRIL
     Dosage: 5 MG, 0-0-1-0
     Route: 065
  7. PREGABALIN. [Suspect]
     Active Substance: PREGABALIN
     Dosage: 50 MG, 1-0-1-0
     Route: 065
  8. NEUPRO [Suspect]
     Active Substance: ROTIGOTINE
     Dosage: 6 MG/H, 1-0-0-0, PLASTER TRANSDERMAL
     Route: 062
  9. LEVODOPA/CARBIDOPA [Concomitant]
     Active Substance: CARBIDOPA\LEVODOPA
     Dosage: 100|25 MG, 1-1-1-0
     Route: 065
  10. METOPROLOL. [Suspect]
     Active Substance: METOPROLOL
     Dosage: 23.75 MG, 1-0-0-0
     Route: 065
  11. DIGITOXIN [Concomitant]
     Active Substance: DIGITOXIN
     Dosage: 0.05 MG, 1-0-0-0; SUNDAY BREAK
     Route: 065
  12. MADOPAR 100MG/25MG [Concomitant]
     Dosage: 100|25 MG, 1-0-0-0
     Route: 065
  13. TORASEMIDE [Suspect]
     Active Substance: TORSEMIDE
     Dosage: 5 MG, 2-1-0-0
     Route: 065
  14. FOLIC ACID. [Concomitant]
     Active Substance: FOLIC ACID
     Dosage: NK MG, 1-0-0-0
     Route: 065
  15. AZILECT [Concomitant]
     Active Substance: RASAGILINE MESYLATE
     Dosage: NK MG, 1-0-0-0
     Route: 065

REACTIONS (3)
  - Fall [Unknown]
  - Presyncope [Unknown]
  - Dizziness [Unknown]
